FAERS Safety Report 12507345 (Version 2)
Quarter: 2016Q3

REPORT INFORMATION
  Report Type: Spontaneous
  Country: GB (occurrence: GB)
  Receive Date: 20160629
  Receipt Date: 20160906
  Transmission Date: 20161109
  Serious: Yes (Other)
  Sender: FDA-Public Use
  Company Number: GB-ACCORD-041831

PATIENT
  Age: 49 Year
  Sex: Male
  Weight: 83 kg

DRUGS (11)
  1. AMLODIPINE [Concomitant]
     Active Substance: AMLODIPINE BESYLATE
     Dates: start: 20160107
  2. CETRABEN EMOLLIENT CREAM [Concomitant]
     Indication: DRY SKIN
     Dosage: APPLY AS OFTEN AS NEEDED TO DRY OR ITCHY SKIN
     Dates: start: 20160428, end: 20160429
  3. LANSOPRAZOLE. [Concomitant]
     Active Substance: LANSOPRAZOLE
     Dates: start: 20150708
  4. PREDNISOLONE. [Concomitant]
     Active Substance: PREDNISOLONE
     Dosage: THREE DAILY TWO WEEKS THEN REDUCE BY 2.5 MG PER FORTNIGHT
     Dates: start: 20160608, end: 20160609
  5. ZAPAIN [Concomitant]
     Active Substance: ACETAMINOPHEN\CODEINE PHOSPHATE
     Dosage: FOUR TO SIX HOURLY WHEN REQUIRED
     Dates: start: 20160428, end: 20160429
  6. MOMETASONE [Concomitant]
     Active Substance: MOMETASONE
     Dosage: APPLY TO BADLY AFFECTED AREAS DAILY
     Dates: start: 20160517
  7. FOLIC ACID. [Concomitant]
     Active Substance: FOLIC ACID
     Dosage: WHILST ON METHOTREXATE
     Dates: start: 20150521
  8. SULFASALAZINE. [Concomitant]
     Active Substance: SULFASALAZINE
     Dates: start: 20150521
  9. METHOTREXATE. [Suspect]
     Active Substance: METHOTREXATE
     Indication: RHEUMATOID ARTHRITIS
     Dosage: INCREASE AS DIRECTED TO SEVEN TO BE TAKEN ONCE
     Dates: start: 20150521, end: 20160414
  10. CANDESARTAN [Interacting]
     Active Substance: CANDESARTAN
     Indication: PRODUCT USED FOR UNKNOWN INDICATION
     Dosage: RECEIVED 8MG FROM 01-MAR-2016 TO 28-MAR-2016, THEN INCREASED TO 16MG ON 28-MAR-2016 AND THEN WITHDRA
     Route: 048
     Dates: start: 20160301, end: 201604
  11. MELOXICAM. [Concomitant]
     Active Substance: MELOXICAM
     Dosage: WITH FOOD
     Dates: start: 20150521

REACTIONS (2)
  - Hepatotoxicity [Recovered/Resolved]
  - Drug interaction [Unknown]

NARRATIVE: CASE EVENT DATE: 20160331
